FAERS Safety Report 8839589 (Version 2)
Quarter: 2012Q4

REPORT INFORMATION
  Report Type: 
  Country: US (occurrence: US)
  Receive Date: 20121015
  Receipt Date: 20121111
  Transmission Date: 20130627
  Serious: Yes (Other)
  Sender: FDA-Public Use
  Company Number: PHEH2012US020036

PATIENT
  Age: 65 Year
  Sex: Female
  Weight: 70.3 kg

DRUGS (12)
  1. GLEEVEC [Suspect]
     Dosage: 400 mg, every day
     Route: 048
  2. PHENERGAN [Concomitant]
     Dosage: 25 mg, UNK
  3. MERCAPTOPURINE [Concomitant]
     Dosage: 50 mg, UNK
  4. PREDNISONE [Concomitant]
     Dosage: 1 mg, UNK
  5. REGLAN [Concomitant]
     Dosage: 5 mg, UNK
  6. GABAPENTIN [Concomitant]
     Dosage: 100 mg, UNK
  7. ACYCLOVIR [Concomitant]
     Dosage: 400 mg, UNK
  8. ZOFRAN [Concomitant]
     Dosage: 4 mg, UNK
  9. FIORICET [Concomitant]
  10. BACTRIM [Concomitant]
     Dosage: 400 mg-80 mg
  11. CALCIUM [Concomitant]
     Dosage: 500
  12. MULTIVITAMINS [Concomitant]
     Dosage: UNK UKN, UNK

REACTIONS (2)
  - Deep vein thrombosis [Unknown]
  - Pulmonary embolism [Unknown]
